FAERS Safety Report 7472598-0 (Version None)
Quarter: 2011Q2

REPORT INFORMATION
  Report Type: 
  Country: None (occurrence: None)
  Receive Date: 20110502
  Receipt Date: 20110420
  Transmission Date: 20111010
  Serious: Yes (Hospitalization)
  Sender: FDA-Public Use
  Company Number: 030721

PATIENT
  Sex: Female
  Weight: 48 kg

DRUGS (1)
  1. CIMZIA [Suspect]
     Indication: RHEUMATOID ARTHRITIS
     Dosage: (200 MG 1X/2 WEEKS, NO OF DOSES RECEIVED:13 SUBCUTANEOUS)
     Route: 058
     Dates: start: 20101014, end: 20110331

REACTIONS (4)
  - ATELECTASIS [None]
  - PNEUMONIA [None]
  - PLEURAL EFFUSION [None]
  - TUBERCULOSIS [None]
